FAERS Safety Report 17862353 (Version 1)
Quarter: 2020Q2

REPORT INFORMATION
  Report Type: Report from Study
  Country: JP (occurrence: JP)
  Receive Date: 20200605
  Receipt Date: 20200605
  Transmission Date: 20200714
  Serious: Yes (Hospitalization)
  Sender: FDA-Public Use
  Company Number: JP-ALEXION PHARMACEUTICALS INC.-A202007415

PATIENT

DRUGS (5)
  1. STRENSIQ [Suspect]
     Active Substance: ASFOTASE ALFA
     Dosage: 80 MG, TIW
     Route: 058
  2. STRENSIQ [Suspect]
     Active Substance: ASFOTASE ALFA
     Dosage: 0.55 MG/KG, UNK
     Route: 058
     Dates: start: 20180213, end: 20180307
  3. STRENSIQ [Suspect]
     Active Substance: ASFOTASE ALFA
     Dosage: 0.5 MG/KG, TIW
     Route: 058
     Dates: start: 20180117, end: 20180212
  4. STRENSIQ [Suspect]
     Active Substance: ASFOTASE ALFA
     Indication: HYPOPHOSPHATASIA
     Dosage: 1 MG/KG, TIW
     Route: 058
     Dates: start: 20170713, end: 20180116
  5. STRENSIQ [Suspect]
     Active Substance: ASFOTASE ALFA
     Dosage: 1 MG/KG, TIW
     Route: 058
     Dates: start: 20180308

REACTIONS (2)
  - Gait disturbance [Unknown]
  - Pain [Unknown]

NARRATIVE: CASE EVENT DATE: 2020
